FAERS Safety Report 4829414-2 (Version None)
Quarter: 2005Q4

REPORT INFORMATION
  Report Type: 
  Country: None (occurrence: None)
  Receive Date: 20051116
  Receipt Date: 20051101
  Transmission Date: 20060501
  Serious: Yes (Hospitalization)
  Sender: FDA-Public Use
  Company Number: NO-MERCK-0511NOR00005

PATIENT
  Age: 64 Year
  Sex: Male

DRUGS (3)
  1. VIOXX [Suspect]
     Indication: ARTHRITIS
     Route: 048
     Dates: start: 20010410, end: 20010501
  2. VIOXX [Suspect]
     Route: 048
     Dates: start: 20020201, end: 20020301
  3. VIOXX [Suspect]
     Route: 048
     Dates: start: 20020621, end: 20020701

REACTIONS (1)
  - MYOCARDIAL INFARCTION [None]
